FAERS Safety Report 18252132 (Version 1)
Quarter: 2020Q3

REPORT INFORMATION
  Report Type: Spontaneous
  Country: US (occurrence: US)
  Receive Date: 20200910
  Receipt Date: 20200910
  Transmission Date: 20201103
  Serious: No
  Sender: FDA-Public Use
  Company Number: US-FARMAPROD-202003-0360

PATIENT
  Sex: Female

DRUGS (20)
  1. NEXIUM [Concomitant]
     Active Substance: ESOMEPRAZOLE MAGNESIUM
  2. CYCLOBENZAPRINE HCL [Concomitant]
     Active Substance: CYCLOBENZAPRINE HYDROCHLORIDE
  3. LIDODERM [Concomitant]
     Active Substance: LIDOCAINE
  4. IMITREX [Concomitant]
     Active Substance: SUMATRIPTAN SUCCINATE
  5. VITAMINE B1 [Concomitant]
     Active Substance: THIAMINE HYDROCHLORIDE
  6. ZYLET [Concomitant]
     Active Substance: LOTEPREDNOL ETABONATE\TOBRAMYCIN
     Dosage: 0.3?0.5%
  7. TRULICITY [Concomitant]
     Active Substance: DULAGLUTIDE
     Dosage: 0.75 MG/0.5 PEN INJUCTION
  8. INDERAL [Concomitant]
     Active Substance: PROPRANOLOL HYDROCHLORIDE
  9. MELOXICAM. [Concomitant]
     Active Substance: MELOXICAM
  10. VENTOLIN HFA [Concomitant]
     Active Substance: ALBUTEROL SULFATE
  11. ALPHA LIPOIC ACID [Concomitant]
     Active Substance: .ALPHA.-LIPOIC ACID
  12. METHENAMINE [Concomitant]
     Active Substance: METHENAMINE
  13. LISINOPRIL. [Concomitant]
     Active Substance: LISINOPRIL
  14. LEVOTHYROXINE SODIUM. [Concomitant]
     Active Substance: LEVOTHYROXINE SODIUM
  15. VICODIN HP [Concomitant]
     Active Substance: ACETAMINOPHEN\HYDROCODONE BITARTRATE
     Dosage: 10?300 MG
  16. OXERVATE [Suspect]
     Active Substance: CENEGERMIN-BKBJ
     Indication: NEUROTROPHIC KERATOPATHY
     Route: 047
     Dates: start: 20200310
  17. PREDNISONE. [Concomitant]
     Active Substance: PREDNISONE
  18. HUMALOG [Concomitant]
     Active Substance: INSULIN LISPRO
  19. SYSTANE (HYPROMELLOSE 2910 (4000 MPA.S)) [Concomitant]
     Active Substance: HYPROMELLOSE 2910 (4000 MPA.S)
     Dosage: 0.3?0.4% DROPERETTE
  20. ZOFRAN [Concomitant]
     Active Substance: ONDANSETRON HYDROCHLORIDE

REACTIONS (2)
  - Eye pain [Not Recovered/Not Resolved]
  - Eye discharge [Unknown]
